FAERS Safety Report 21919890 (Version 1)
Quarter: 2023Q1

REPORT INFORMATION
  Report Type: Report from Study
  Country: US (occurrence: US)
  Receive Date: 20230127
  Receipt Date: 20230127
  Transmission Date: 20230418
  Serious: Yes (Hospitalization, Other)
  Sender: FDA-Public Use
  Company Number: US-OTSUKA-2022_045602

PATIENT
  Age: 70 Year
  Sex: Female

DRUGS (5)
  1. TOLVAPTAN [Suspect]
     Active Substance: TOLVAPTAN
     Indication: Congenital cystic kidney disease
     Dosage: 45 MG, QD (UPON WAKING)
     Route: 048
  2. TOLVAPTAN [Suspect]
     Active Substance: TOLVAPTAN
     Dosage: 15 MG, QD (8 HOURS LATER)
     Route: 048
  3. TOLVAPTAN [Suspect]
     Active Substance: TOLVAPTAN
     Dosage: 60 MG, QD (UPON WAKING)
     Route: 048
  4. TOLVAPTAN [Suspect]
     Active Substance: TOLVAPTAN
     Dosage: 30 MG, QD (8 HOURS LATER)
     Route: 048
  5. KEPPRA [Concomitant]
     Active Substance: LEVETIRACETAM
     Indication: Seizure
     Dosage: UNK
     Route: 065

REACTIONS (17)
  - Autonomic nervous system imbalance [Unknown]
  - Atrial fibrillation [Unknown]
  - Gingival pain [Unknown]
  - Noninfective gingivitis [Unknown]
  - Loss of consciousness [Unknown]
  - Glossitis [Unknown]
  - Diverticulitis [Unknown]
  - Arrhythmia [Unknown]
  - Glossodynia [Unknown]
  - Hypotension [Unknown]
  - Urinary tract infection [Unknown]
  - Dizziness postural [Unknown]
  - Chest pain [Unknown]
  - Constipation [Unknown]
  - Dehydration [Unknown]
  - Decreased appetite [Unknown]
  - Diarrhoea [Not Recovered/Not Resolved]

NARRATIVE: CASE EVENT DATE: 20230117
